FAERS Safety Report 9515542 (Version 3)
Quarter: 2013Q4

REPORT INFORMATION
  Report Type: Spontaneous
  Country: US (occurrence: US)
  Receive Date: 20130911
  Receipt Date: 20131224
  Transmission Date: 20140711
  Serious: Yes (Hospitalization, Disabling)
  Sender: FDA-Public Use
  Company Number: PHEH2013US019009

PATIENT
  Age: 33 Year
  Sex: Male
  Weight: 86.8 kg

DRUGS (1)
  1. GILENYA [Suspect]
     Indication: RELAPSING-REMITTING MULTIPLE SCLEROSIS
     Route: 048
     Dates: start: 20130409, end: 20130415

REACTIONS (8)
  - Multiple sclerosis relapse [Recovered/Resolved with Sequelae]
  - Dysarthria [Unknown]
  - Incontinence [Unknown]
  - Ataxia [Unknown]
  - Communication disorder [Unknown]
  - Coordination abnormal [Unknown]
  - Amnesia [Unknown]
  - Asthenia [Unknown]
